FAERS Safety Report 5108675-9 (Version None)
Quarter: 2006Q3

REPORT INFORMATION
  Report Type: 
  Country: None (occurrence: None)
  Receive Date: 20060915
  Receipt Date: 20060904
  Transmission Date: 20061208
  Serious: Yes (Hospitalization)
  Sender: FDA-Public Use
  Company Number: 2006-147591-NL

PATIENT
  Age: 92 Year
  Sex: Female

DRUGS (6)
  1. MIRTAZAPINE [Suspect]
     Indication: DEPRESSION
     Dosage: 15 MG BID ORAL
     Route: 048
     Dates: start: 20060701, end: 20060718
  2. TIAPRIDE [Suspect]
     Indication: DEPRESSION
     Dosage: 25 MG BID ORAL
     Route: 048
     Dates: start: 20060701
  3. DESLORATADINE [Concomitant]
  4. ASPIRIN [Concomitant]
  5. LEVOTHYROXINE SODIUM [Concomitant]
  6. ORNITHINE OXOGLURATE [Concomitant]

REACTIONS (5)
  - BLOOD CHLORIDE DECREASED [None]
  - DEHYDRATION [None]
  - HAEMATOCRIT DECREASED [None]
  - HYPONATRAEMIA [None]
  - SOMNOLENCE [None]
